FAERS Safety Report 5569956-8 (Version None)
Quarter: 2007Q4

REPORT INFORMATION
  Report Type: 
  Country: None (occurrence: None)
  Receive Date: 20071217
  Receipt Date: 20071203
  Transmission Date: 20080405
  Serious: Yes (Life-Threatening)
  Sender: FDA-Public Use
  Company Number: GXKR2007IT09762

PATIENT
  Age: 3 Year
  Sex: Male

DRUGS (1)
  1. CEFTRIAXONE HEXAL                (CEFTRIAXONE) POWDER FOR SOL FOR INF [Suspect]
     Indication: PHARYNGOTONSILLITIS
     Dosage: 1000 MG,/3.5 ML, INTRAMUSCULAR
     Route: 030
     Dates: start: 20071102, end: 20071102

REACTIONS (14)
  - ANAPHYLACTIC SHOCK [None]
  - ANURIA [None]
  - APALLIC SYNDROME [None]
  - AREFLEXIA [None]
  - CYANOSIS [None]
  - GASTROINTESTINAL TUBE INSERTION [None]
  - HYPOTONIA [None]
  - MALAISE [None]
  - MYDRIASIS [None]
  - PALLOR [None]
  - PULSE ABSENT [None]
  - RESPIRATORY ARREST [None]
  - RESPIRATORY DISTRESS [None]
  - TONGUE OEDEMA [None]
